FAERS Safety Report 7788377-0 (Version None)
Quarter: 2011Q3

REPORT INFORMATION
  Report Type: 
  Country: None (occurrence: None)
  Receive Date: 20110930
  Receipt Date: 20110920
  Transmission Date: 20111222
  Serious: Yes (Other)
  Sender: FDA-Public Use
  Company Number: CA-JNJFOC-20100708392

PATIENT
  Sex: Male
  Weight: 107 kg

DRUGS (14)
  1. NAPROXEN [Concomitant]
  2. RABEPRAZOLE SODIUM [Concomitant]
  3. REMICADE [Suspect]
     Indication: BEHCET'S SYNDROME
     Route: 042
     Dates: start: 20071201
  4. HYDROMORPHONE CONTIN [Concomitant]
  5. AMITRIPTYLINE HCL [Concomitant]
     Dosage: UP TO 75 MG AT NIGHT
  6. REMICADE [Suspect]
     Indication: COLITIS ULCERATIVE
     Route: 042
     Dates: start: 20071201
  7. CYMBALTA [Concomitant]
  8. SANDOMIGRAN [Concomitant]
  9. VITAMIN B COMPLEX CAP [Concomitant]
     Dosage: ^10,000^
  10. E VITAMIN [Concomitant]
  11. LYRICA [Concomitant]
  12. TOPAMAX [Concomitant]
  13. LOVAZA [Concomitant]
     Dosage: ^2 TIMES^
  14. MELATONIN [Concomitant]

REACTIONS (3)
  - CELLULITIS [None]
  - NAIL OPERATION [None]
  - INCISIONAL DRAINAGE [None]
